FAERS Safety Report 14020000 (Version 2)
Quarter: 2018Q2

REPORT INFORMATION
  Report Type: Report from Study
  Country: FR (occurrence: FR)
  Receive Date: 20170928
  Receipt Date: 20180427
  Transmission Date: 20180711
  Serious: Yes (Hospitalization)
  Sender: FDA-Public Use
  Company Number: FR-PFIZER INC-2017418098

PATIENT
  Age: 86 Year
  Sex: Female

DRUGS (2)
  1. DABIGATRAN [Interacting]
     Active Substance: DABIGATRAN
     Indication: PHLEBITIS
     Dosage: 110 MG, 2X/DAY
     Route: 048
  2. ATORVASTATIN CALCIUM. [Suspect]
     Active Substance: ATORVASTATIN CALCIUM
     Indication: ATRIAL FIBRILLATION
     Dosage: UNK
     Route: 065

REACTIONS (2)
  - Drug interaction [Recovered/Resolved]
  - Subdural haematoma [Recovered/Resolved]
